FAERS Safety Report 9487062 (Version 2)
Quarter: 2013Q4

REPORT INFORMATION
  Report Type: Spontaneous
  Country: IT (occurrence: None)
  Receive Date: 20130823
  Receipt Date: 20131018
  Transmission Date: 20140711
  Serious: Yes (Hospitalization)
  Sender: FDA-Public Use
  Company Number: AUR-APL-2013-06897

PATIENT
  Age: 58 Year
  Sex: Male

DRUGS (8)
  1. ATENOLOL [Suspect]
     Indication: HYPERTENSION
     Route: 048
     Dates: start: 20070101, end: 20130620
  2. DRONEDARONE HYDROCHLORIDE [Suspect]
     Indication: ATRIAL FIBRILLATION
     Route: 048
     Dates: start: 20070101, end: 20130620
  3. KCL [Suspect]
     Indication: HYPERTENSION
     Route: 048
     Dates: start: 20070101, end: 20130620
  4. LASIX (FUROSEMIDE) [Concomitant]
  5. COUMADIN (WARFARIN SODIUM) [Concomitant]
  6. CRESTOR (ROSUVASTATIN CALCIUM) [Concomitant]
  7. PANTORC (PANTOPRAZOLE SODIUM SESQUIHYDRATE) [Concomitant]
  8. FELODIPINA (FELODIPINE) [Concomitant]

REACTIONS (4)
  - Hyperkalaemia [None]
  - Nodal arrhythmia [None]
  - Iatrogenic injury [None]
  - Blood pressure decreased [None]
